FAERS Safety Report 8785834 (Version 2)
Quarter: 2012Q4

REPORT INFORMATION
  Report Type: Spontaneous
  Country: JP (occurrence: None)
  Receive Date: 20120905
  Receipt Date: 20120921
  Transmission Date: 20130627
  Serious: Yes (Other)
  Sender: FDA-Public Use
  Company Number: DSA_59172_2012

PATIENT
  Age: 64 Year
  Sex: Female

DRUGS (8)
  1. FLUOROURACIL (FLUOROURACIL) [Suspect]
     Indication: BREAST CANCER
     Dosage: (DF, every cycle)
  2. EPIRUBICIN [Suspect]
     Indication: BREAST CANCER
     Dosage: (DF, every cycle)
  3. CYCLOPHOSPHAMIDE [Suspect]
     Indication: BREAST CANCER
     Dosage: (DF, every cycle)
  4. DOCETAXEL [Suspect]
     Indication: BREAST CANCER
     Dosage: (DF, every three weeks)
     Route: 042
     Dates: start: 20120410, end: 20120502
  5. PACLITAXEL [Suspect]
     Indication: BREAST CANCER
     Dosage: (DF, every three weeks)
  6. LEVOFLOXACIN (LEVOFLOXACIN) [Suspect]
     Indication: PRODUCT USED FOR UNKNOWN INDICATION
     Dosage: (DF)
  7. I.V. SOLUTIONS (UNKNOWN) [Concomitant]
  8. CIPROXAN /00697202/ [Concomitant]

REACTIONS (3)
  - Tubulointerstitial nephritis [None]
  - Neuropathy peripheral [None]
  - Renal impairment [None]
